FAERS Safety Report 8197673-7 (Version None)
Quarter: 2012Q1

REPORT INFORMATION
  Report Type: 
  Country: None (occurrence: None)
  Receive Date: 20120309
  Receipt Date: 20120306
  Transmission Date: 20120608
  Serious: Yes (Disabling)
  Sender: FDA-Public Use
  Company Number: GB-PFIZER INC-2012051887

PATIENT
  Age: 47 Year
  Sex: Male
  Weight: 97 kg

DRUGS (28)
  1. GLYCERYL TRINITRATE [Concomitant]
     Dosage: UNK
     Dates: start: 20111025, end: 20111209
  2. LAXIDO [Concomitant]
     Dosage: UNK
     Dates: start: 20111213, end: 20120208
  3. OMEPRAZOLE [Concomitant]
     Dosage: UNK
     Dates: start: 20111110, end: 20111208
  4. SIMVASTATIN [Concomitant]
     Dosage: UNK
     Dates: start: 20111110, end: 20111208
  5. ACETYLSALICYLIC ACID [Concomitant]
     Dosage: UNK
     Dates: start: 20111110, end: 20111208
  6. ACETYLSALICYLIC ACID [Concomitant]
     Dosage: UNK
     Dates: start: 20111213, end: 20120208
  7. BENDROFLUMETHIAZIDE [Concomitant]
     Dosage: UNK
     Dates: start: 20111213, end: 20120208
  8. BISOPROLOL [Concomitant]
     Dosage: UNK
     Dates: start: 20111110, end: 20111208
  9. OMEPRAZOLE [Concomitant]
     Dosage: UNK
     Dates: start: 20111213, end: 20120208
  10. BENDROFLUMETHIAZIDE [Concomitant]
     Dosage: UNK
     Dates: start: 20111110, end: 20111208
  11. CINCHOCAINE [Concomitant]
     Dosage: UNK
     Dates: start: 20111125, end: 20111205
  12. SENNA [Concomitant]
     Dosage: UNK
     Dates: start: 20111130, end: 20111228
  13. SIMVASTATIN [Concomitant]
     Dosage: UNK
     Dates: start: 20111213, end: 20120208
  14. BETAMETHASONE VALERATE [Concomitant]
     Dosage: UNK
     Dates: start: 20120117, end: 20120214
  15. VALPROATE SODIUM [Concomitant]
     Dosage: UNK
     Dates: start: 20111110, end: 20111208
  16. GLYCEROL [Concomitant]
     Dosage: UNK
     Dates: start: 20111207, end: 20111209
  17. LAXIDO [Concomitant]
     Dosage: UNK
     Dates: start: 20111110, end: 20111208
  18. OTOMIZE [Concomitant]
     Dosage: UNK
     Dates: start: 20111114, end: 20111205
  19. PROCTOSEDYL ^HOECHST^ [Concomitant]
     Dosage: UNK
     Dates: start: 20111213, end: 20120208
  20. BISOPROLOL [Concomitant]
     Dosage: UNK
     Dates: start: 20111213, end: 20120208
  21. VALPROATE SODIUM [Concomitant]
     Dosage: UNK
     Dates: start: 20111213, end: 20120208
  22. PARACETAMOL [Concomitant]
     Dosage: UNK
     Dates: start: 20111110, end: 20111208
  23. PROCTOSEDYL ^HOECHST^ [Concomitant]
     Dosage: UNK
     Dates: start: 20111025, end: 20111209
  24. RAMIPRIL [Concomitant]
     Dosage: UNK
     Dates: start: 20111110, end: 20111208
  25. AMLODIPINE BESYLATE [Suspect]
     Dosage: UNK
     Dates: start: 20120117, end: 20120207
  26. GLYCERYL TRINITRATE [Concomitant]
     Dosage: UNK
     Dates: start: 20111213, end: 20120208
  27. PARACETAMOL [Concomitant]
     Dosage: UNK
     Dates: start: 20111213, end: 20120208
  28. RAMIPRIL [Concomitant]
     Dosage: UNK
     Dates: start: 20111213, end: 20120208

REACTIONS (1)
  - EPILEPSY [None]
